FAERS Safety Report 22299405 (Version 2)
Quarter: 2023Q2

REPORT INFORMATION
  Report Type: Report from Study
  Country: AU (occurrence: AU)
  Receive Date: 20230509
  Receipt Date: 20230512
  Transmission Date: 20230722
  Serious: Yes (Other)
  Sender: FDA-Public Use
  Company Number: AU-002147023-NVSC2023AU100893

PATIENT
  Sex: Female

DRUGS (1)
  1. COSENTYX [Suspect]
     Active Substance: SECUKINUMAB
     Indication: Psoriatic arthropathy
     Dosage: UNK UNK, QMO
     Route: 058
     Dates: start: 20210709

REACTIONS (15)
  - Major depression [Unknown]
  - Type 2 diabetes mellitus [Unknown]
  - Seizure [Unknown]
  - Syncope [Unknown]
  - Pneumothorax traumatic [Unknown]
  - Tendon rupture [Unknown]
  - Intervertebral disc degeneration [Unknown]
  - Musculoskeletal chest pain [Unknown]
  - Decreased appetite [Unknown]
  - General physical health deterioration [Unknown]
  - Joint dislocation [Unknown]
  - Blood pressure abnormal [Not Recovered/Not Resolved]
  - Fall [Unknown]
  - Head injury [Unknown]
  - Pain [Unknown]
